FAERS Safety Report 11179986 (Version 1)
Quarter: 2015Q2

REPORT INFORMATION
  Report Type: Spontaneous
  Country: US (occurrence: US)
  Receive Date: 20150611
  Receipt Date: 20150611
  Transmission Date: 20150821
  Serious: No
  Sender: FDA-Public Use
  Company Number: US-TEVA-566848USA

PATIENT

DRUGS (1)
  1. DULOXETINE [Suspect]
     Active Substance: DULOXETINE
     Route: 065

REACTIONS (6)
  - Pain [Unknown]
  - Drug ineffective [Unknown]
  - Product substitution issue [Unknown]
  - Depression [Unknown]
  - Headache [Unknown]
  - Nausea [Unknown]
